FAERS Safety Report 4277270-6 (Version None)
Quarter: 2004Q1

REPORT INFORMATION
  Report Type: 
  Country: None (occurrence: None)
  Receive Date: 20040120
  Receipt Date: 20040108
  Transmission Date: 20041129
  Serious: Yes (Hospitalization)
  Sender: FDA-Public Use
  Company Number: US-JNJFOC-20030706646

PATIENT
  Age: 81 Year
  Sex: Male

DRUGS (7)
  1. INFLIXIMAB (INFLIXIMAB, RECOMBINANT) LYOPHILIZED POWDER [Suspect]
     Indication: RHEUMATOID ARTHRITIS
     Dosage: INTRAVENOUS
     Route: 042
     Dates: start: 20000517
  2. PREVACID [Concomitant]
  3. METHOTREXATE [Concomitant]
  4. PROZAC [Concomitant]
  5. ACTONEL [Concomitant]
  6. CALTRATE (CALCIUM CARBONATE) [Concomitant]
  7. FOLIC ACID [Concomitant]

REACTIONS (2)
  - BENIGN COLONIC POLYP [None]
  - DUODENAL ULCER [None]
